FAERS Safety Report 7713867-6 (Version None)
Quarter: 2011Q3

REPORT INFORMATION
  Report Type: 
  Country: None (occurrence: None)
  Receive Date: 20110826
  Receipt Date: 20110823
  Transmission Date: 20111222
  Serious: Yes (Death, Hospitalization, Other)
  Sender: FDA-Public Use
  Company Number: PHHY2011JP75225

PATIENT
  Age: 59 Year
  Sex: Female

DRUGS (2)
  1. PEG-INTRON [Suspect]
     Indication: HEPATITIS C
     Dosage: 80 UG, QW
     Route: 058
     Dates: start: 20090201
  2. RIBAVIRIN [Suspect]
     Indication: HEPATITIS C
     Dosage: 600 MG/DAY
     Route: 048
     Dates: start: 20090201

REACTIONS (15)
  - STAPHYLOCOCCAL INFECTION [None]
  - SEPSIS [None]
  - HYPOALBUMINAEMIA [None]
  - PLEURAL EFFUSION [None]
  - AZOTAEMIA [None]
  - BLOOD PRESSURE DECREASED [None]
  - SEPTIC SHOCK [None]
  - PYREXIA [None]
  - PALLOR [None]
  - SOMNOLENCE [None]
  - ABSCESS [None]
  - MOUTH HAEMORRHAGE [None]
  - THROMBOCYTOPENIA [None]
  - DEPRESSED LEVEL OF CONSCIOUSNESS [None]
  - PURPURA [None]
